FAERS Safety Report 19993559 (Version 2)
Quarter: 2022Q1

REPORT INFORMATION
  Report Type: Report from Study
  Country: NL (occurrence: NL)
  Receive Date: 20211025
  Receipt Date: 20220210
  Transmission Date: 20220424
  Serious: Yes (Death)
  Sender: FDA-Public Use
  Company Number: NL-NOVARTISPH-NVSC2021NL242155

PATIENT
  Age: 29 Year
  Sex: Male
  Weight: 89 kg

DRUGS (25)
  1. TISAGENLECLEUCEL [Suspect]
     Active Substance: TISAGENLECLEUCEL
     Indication: B-cell lymphoma
     Dosage: 3.4_10E8 CELLS
     Route: 042
     Dates: start: 20200615
  2. RITUXIMAB [Suspect]
     Active Substance: RITUXIMAB
     Indication: B-cell lymphoma
     Dosage: 800 MG, ONCE/SINGLE
     Route: 065
     Dates: start: 20191218
  3. DEXAMETHASONE [Suspect]
     Active Substance: DEXAMETHASONE
     Indication: B-cell lymphoma
     Dosage: 120 MG, QD
     Route: 048
     Dates: start: 20191216
  4. CYTARABINE [Suspect]
     Active Substance: CYTARABINE
     Indication: B-cell lymphoma
     Dosage: 8800 MG, QD
     Route: 042
     Dates: start: 20191217
  5. CISPLATIN [Suspect]
     Active Substance: CISPLATIN
     Indication: B-cell lymphoma
     Dosage: 218 MG, CONT (CONTINUOUS INFUSION 24H)
     Route: 041
     Dates: start: 20191216
  6. IFOSFAMIDE [Suspect]
     Active Substance: IFOSFAMIDE
     Indication: B-cell lymphoma
     Dosage: 11120 MG, CONT (CONTINUOUS INFUSION 24 H)
     Route: 041
     Dates: start: 20200205
  7. CARBOPLATIN [Suspect]
     Active Substance: CARBOPLATIN
     Indication: B-cell lymphoma
     Dosage: 750 MG, ONCE/SINGLE
     Route: 065
     Dates: start: 20200205
  8. ETOPOSIDE [Suspect]
     Active Substance: ETOPOSIDE
     Indication: B-cell lymphoma
     Dosage: 666 MG, QD
     Route: 042
     Dates: start: 20200204
  9. MESNA [Suspect]
     Active Substance: MESNA
     Indication: B-cell lymphoma
     Dosage: 16.65 G, Q12H
     Route: 065
     Dates: start: 20200205
  10. VALACYCLOVIR HYDROCHLORIDE [Concomitant]
     Active Substance: VALACYCLOVIR HYDROCHLORIDE
     Indication: Antiviral prophylaxis
     Dosage: UNK
     Route: 065
     Dates: start: 20200130
  11. METOCLOPRAMIDE [Concomitant]
     Active Substance: METOCLOPRAMIDE
     Indication: Vomiting
     Dosage: UNK
     Route: 065
     Dates: start: 20200215
  12. SULFAMETHOXAZOLE\TRIMETHOPRIM [Concomitant]
     Active Substance: SULFAMETHOXAZOLE\TRIMETHOPRIM
     Indication: Infection prophylaxis
     Dosage: UNK
     Route: 065
     Dates: start: 20200615
  13. CYTARABINE [Concomitant]
     Active Substance: CYTARABINE
     Indication: Chemotherapy
     Dosage: 72 MG, ONCE/SINGLE
     Route: 037
     Dates: start: 20200511, end: 20200511
  14. CYTARABINE [Concomitant]
     Active Substance: CYTARABINE
     Dosage: 72 MG, ONCE/SINGLE
     Route: 037
     Dates: start: 20200514, end: 20200514
  15. CYTARABINE [Concomitant]
     Active Substance: CYTARABINE
     Dosage: 72 MG, ONCE/SINGLE
     Route: 037
     Dates: start: 20200518, end: 20200518
  16. CYTARABINE [Concomitant]
     Active Substance: CYTARABINE
     Dosage: 75 MG, ONCE/SINGLE
     Route: 037
     Dates: start: 20200522, end: 20200522
  17. CYTARABINE [Concomitant]
     Active Substance: CYTARABINE
     Dosage: 72 MG, ONCE/SINGLE
     Route: 037
     Dates: start: 20200525, end: 20200525
  18. CYTARABINE [Concomitant]
     Active Substance: CYTARABINE
     Dosage: 72 MG, ONCE/SINGLE
     Route: 037
     Dates: start: 20200528, end: 20200528
  19. CYTARABINE [Concomitant]
     Active Substance: CYTARABINE
     Dosage: 72 MG, ONCE/SINGLE
     Route: 037
     Dates: start: 20200602, end: 20200602
  20. CYTARABINE [Concomitant]
     Active Substance: CYTARABINE
     Dosage: 72 MG, ONCE/SINGLE
     Route: 037
     Dates: start: 20200608, end: 20200608
  21. FLUDARABINE [Concomitant]
     Active Substance: FLUDARABINE PHOSPHATE
     Indication: Chemotherapy
     Dosage: 165 MG, QD
     Route: 065
     Dates: start: 20200610, end: 20200612
  22. CYCLOPHOSPHAMIDE [Concomitant]
     Active Substance: CYCLOPHOSPHAMIDE
     Indication: Chemotherapy
     Dosage: 1650 MG, QD
     Route: 065
     Dates: start: 20200610, end: 20200612
  23. METHOTREXATE [Concomitant]
     Active Substance: METHOTREXATE
     Indication: Chemotherapy
     Dosage: 6500 MG, ONCE/SINGLE
     Route: 065
     Dates: start: 20200508, end: 20200508
  24. METHOTREXATE [Concomitant]
     Active Substance: METHOTREXATE
     Dosage: 6500 MG, ONCE/SINGLE
     Route: 065
     Dates: start: 20200522, end: 20200522
  25. PREDNISOLONE [Concomitant]
     Active Substance: PREDNISOLONE
     Indication: Product used for unknown indication
     Dosage: UNK
     Route: 065
     Dates: start: 20201104

REACTIONS (1)
  - Completed suicide [Fatal]

NARRATIVE: CASE EVENT DATE: 20210203
